FAERS Safety Report 9331440 (Version 2)
Quarter: 2013Q3

REPORT INFORMATION
  Report Type: Report from Study
  Country: US (occurrence: US)
  Receive Date: 20130605
  Receipt Date: 20130926
  Transmission Date: 20140515
  Serious: Yes (Hospitalization)
  Sender: FDA-Public Use
  Company Number: US-ELI_LILLY_AND_COMPANY-US201305009301

PATIENT
  Age: 68 Year
  Sex: Female

DRUGS (8)
  1. TERIPARATIDE [Suspect]
     Indication: OSTEOPOROSIS
     Dosage: UNK, QD
     Dates: start: 201110, end: 20130511
  2. TERIPARATIDE [Suspect]
     Dosage: UNK, QD
  3. LORTAB [Concomitant]
     Indication: PAIN
     Dosage: 5 MG, TID
  4. TRAMADOL [Concomitant]
     Dosage: 100 MG, TID
  5. SOMA [Concomitant]
     Dosage: UNK, QD
  6. AMBIEN [Concomitant]
     Dosage: 5 MG, EACH EVENING
  7. ALBUTEROL [Concomitant]
     Dosage: UNK, PRN
  8. FLONASE [Concomitant]
     Dosage: UNK, PRN

REACTIONS (8)
  - Herpes virus infection [Recovered/Resolved]
  - Poisoning [Unknown]
  - Dental caries [Unknown]
  - Genital herpes [Unknown]
  - Feeling abnormal [Recovered/Resolved]
  - Jaw disorder [Unknown]
  - Incorrect product storage [Unknown]
  - Drug dose omission [Unknown]
